FAERS Safety Report 6090598-2 (Version None)
Quarter: 2009Q1

REPORT INFORMATION
  Report Type: 
  Country: None (occurrence: None)
  Receive Date: 20090224
  Receipt Date: 20090121
  Transmission Date: 20090719
  Serious: No
  Sender: FDA-Public Use
  Company Number: US-ABBOTT-09P-163-0496895-00

PATIENT
  Sex: Male
  Weight: 77.18 kg

DRUGS (11)
  1. SIMCOR [Suspect]
     Indication: LOW DENSITY LIPOPROTEIN INCREASED
     Dosage: 500/20 MG
     Route: 048
     Dates: start: 20090107
  2. SIMCOR [Suspect]
     Indication: HIGH DENSITY LIPOPROTEIN DECREASED
  3. METFORMIN [Concomitant]
     Indication: GLUCOSE TOLERANCE IMPAIRED
     Route: 048
  4. ASACOL [Concomitant]
     Indication: COLITIS
     Route: 048
  5. NEXIUM [Concomitant]
     Indication: PHARYNGEAL DISORDER
     Route: 048
  6. AVODART [Concomitant]
     Indication: PROSTATOMEGALY
     Route: 048
  7. ZINC [Concomitant]
     Indication: OSTEOPENIA
     Route: 048
  8. TESTOSTERONE [Concomitant]
     Indication: OSTEOPENIA
     Route: 050
  9. VITAMIN D [Concomitant]
     Indication: OSTEOPENIA
     Route: 048
  10. IBUPROFEN TABLETS [Concomitant]
     Indication: DRUG USE FOR UNKNOWN INDICATION
     Route: 048
  11. VARIED ERECTILE DRUGS [Concomitant]
     Indication: DRUG USE FOR UNKNOWN INDICATION

REACTIONS (1)
  - FLUSHING [None]
